FAERS Safety Report 24957688 (Version 2)
Quarter: 2025Q3

REPORT INFORMATION
  Report Type: Spontaneous
  Country: EU (occurrence: EU)
  Receive Date: 20250212
  Receipt Date: 20250809
  Transmission Date: 20251021
  Serious: Yes (Life-Threatening, Hospitalization, Other)
  Sender: ALEXION PHARMACEUTICALS
  Company Number: None

PATIENT
  Age: 57 Year
  Sex: Female
  Weight: 90 kg

DRUGS (7)
  1. TICAGRELOR [Suspect]
     Active Substance: TICAGRELOR
     Indication: Anticoagulant therapy
     Dosage: 90 MILLIGRAM, Q12H
     Dates: start: 20250127, end: 20250130
  2. ASPIRIN [Suspect]
     Active Substance: ASPIRIN
     Indication: Stent placement
     Dates: start: 20250128
  3. LOVENOX [Suspect]
     Active Substance: ENOXAPARIN SODIUM
     Indication: Anticoagulant therapy
     Dates: start: 20250127, end: 20250129
  4. LOVENOX [Suspect]
     Active Substance: ENOXAPARIN SODIUM
     Dates: start: 20250129
  5. ATORVASTATIN [Concomitant]
     Active Substance: ATORVASTATIN
     Indication: Ischaemic heart disease prophylaxis
     Dosage: 80 MILLIGRAM, QD
     Dates: start: 20250127
  6. COLCHICINE [Concomitant]
     Active Substance: COLCHICINE
     Indication: Ischaemic heart disease prophylaxis
     Dosage: 0.5 MILLIGRAM, QD
     Dates: start: 20250128
  7. LEVOTHYROXINE SODIUM [Concomitant]
     Active Substance: LEVOTHYROXINE SODIUM
     Indication: Ischaemic heart disease prophylaxis
     Dosage: 100 MICROGRAM, QD

REACTIONS (2)
  - Vascular stent thrombosis [Recovered/Resolved]
  - Drug ineffective [Recovered/Resolved]

NARRATIVE: CASE EVENT DATE: 20250129
